FAERS Safety Report 5361166-2 (Version None)
Quarter: 2007Q2

REPORT INFORMATION
  Report Type: 
  Country: None (occurrence: None)
  Receive Date: 20070530
  Receipt Date: 20070131
  Transmission Date: 20071010
  Serious: No
  Sender: FDA-Public Use
  Company Number: 2007PV029321

PATIENT
  Age: 75 Year
  Sex: Male

DRUGS (8)
  1. BYETTA [Suspect]
     Indication: DIABETES MELLITUS NON-INSULIN-DEPENDENT
     Dosage: 10 MCG;BID;SC ; 5 MCG;BID;SC
     Route: 058
     Dates: start: 20061101, end: 20061201
  2. BYETTA [Suspect]
     Indication: DIABETES MELLITUS NON-INSULIN-DEPENDENT
     Dosage: 10 MCG;BID;SC ; 5 MCG;BID;SC
     Route: 058
     Dates: start: 20061201
  3. ACTOS [Concomitant]
  4. AVANDIA [Concomitant]
  5. PRECOSE [Concomitant]
  6. HUMULIN N [Concomitant]
  7. HUMALOG [Concomitant]
  8. METFORMIN HCL [Concomitant]

REACTIONS (2)
  - HYPOGLYCAEMIA [None]
  - PAIN IN EXTREMITY [None]
